FAERS Safety Report 8622601-7 (Version None)
Quarter: 2012Q3

REPORT INFORMATION
  Report Type: 
  Country: None (occurrence: None)
  Receive Date: 20120813
  Receipt Date: 20120726
  Transmission Date: 20120928
  Serious: Yes (Disabling, Other)
  Sender: FDA-Public Use
  Company Number: 2012R1-58660

PATIENT
  Age: 62 Year
  Sex: Female
  Weight: 89.3 kg

DRUGS (8)
  1. CIPROFLOXACIN [Suspect]
     Indication: BRONCHITIS
     Dosage: 1 DF, BID, ORAL
     Route: 048
     Dates: start: 20120521, end: 20120526
  2. MU-CRON (PARACETAMOL, PARACETAMOL DC 96%, PHENYLPROPANOLAMINE HYDROCHL [Concomitant]
  3. ADCAL (CALCIUM CARBONATE) UNKNOWN [Concomitant]
  4. DOXYCYCLINE [Concomitant]
  5. OMEPRAZOLE [Concomitant]
  6. FELODIPINE (FELODIPINE) UNKNOWN [Concomitant]
  7. AMOXYCILLIN (AMOXYCILLIN) UNKNOWN [Concomitant]
  8. SERETIDE (FLUTICASONE PROPIONATE MICRONISED, SALMETEROL XINAFOATE MICR [Concomitant]

REACTIONS (4)
  - OEDEMA PERIPHERAL [None]
  - ULCER [None]
  - PARAESTHESIA [None]
  - BLISTER [None]
